FAERS Safety Report 12426506 (Version 1)
Quarter: 2016Q2

REPORT INFORMATION
  Report Type: Report from Study
  Country: CO (occurrence: CO)
  Receive Date: 20160601
  Receipt Date: 20160601
  Transmission Date: 20160815
  Serious: Yes (Other)
  Sender: FDA-Public Use
  Company Number: CO-REGENERON PHARMACEUTICALS, INC.-2016-17801

PATIENT

DRUGS (3)
  1. EYLEA [Suspect]
     Active Substance: AFLIBERCEPT
     Dosage: 1 DF DOSAGE FORM, Q 1 MON
     Dates: start: 201501
  2. EYLEA [Suspect]
     Active Substance: AFLIBERCEPT
     Indication: AGE-RELATED MACULAR DEGENERATION
     Dosage: 1 DF DOSAGE FORM, Q 1 MON
     Dates: start: 20141007
  3. EYLEA [Suspect]
     Active Substance: AFLIBERCEPT
     Dosage: 3 MORE INJECTIONS

REACTIONS (1)
  - Macular degeneration [Not Recovered/Not Resolved]
